FAERS Safety Report 8813911 (Version 2)
Quarter: 2015Q2

REPORT INFORMATION
  Report Type: Report from Study
  Country: US (occurrence: US)
  Receive Date: 20120928
  Receipt Date: 20150623
  Transmission Date: 20150821
  Serious: Yes (Other)
  Sender: FDA-Public Use
  Company Number: US-ROCHE-1130246

PATIENT
  Sex: Female

DRUGS (11)
  1. ADRIAMYCIN [Concomitant]
     Active Substance: DOXORUBICIN HYDROCHLORIDE
  2. CYTOXAN [Concomitant]
     Active Substance: CYCLOPHOSPHAMIDE
  3. FLUOROURACIL. [Concomitant]
     Active Substance: FLUOROURACIL
  4. AVASTIN [Suspect]
     Active Substance: BEVACIZUMAB
     Indication: BREAST CANCER FEMALE
     Route: 042
     Dates: start: 20060317
  5. HERCEPTIN [Suspect]
     Active Substance: TRASTUZUMAB
     Indication: BREAST CANCER FEMALE
     Route: 065
  6. TAXOTERE [Concomitant]
     Active Substance: DOCETAXEL
     Route: 065
     Dates: start: 200302
  7. CYCLOPHOSPHAMIDE. [Concomitant]
     Active Substance: CYCLOPHOSPHAMIDE
  8. TAXOL [Concomitant]
     Active Substance: PACLITAXEL
  9. GEMZAR [Concomitant]
     Active Substance: GEMCITABINE HYDROCHLORIDE
  10. METHOTREXATE [Concomitant]
     Active Substance: METHOTREXATE
  11. NAVELBINE [Concomitant]
     Active Substance: VINORELBINE TARTRATE

REACTIONS (6)
  - Asthenia [Unknown]
  - Nerve compression [Unknown]
  - Neuralgia [Unknown]
  - Off label use [Unknown]
  - Disease progression [Unknown]
  - Pain [Unknown]
